FAERS Safety Report 10283700 (Version 8)
Quarter: 2016Q2

REPORT INFORMATION
  Report Type: Spontaneous
  Country: US (occurrence: US)
  Receive Date: 20140708
  Receipt Date: 20160620
  Transmission Date: 20160815
  Serious: Yes (Death, Hospitalization, Disabling, Other)
  Sender: FDA-Public Use
  Company Number: US-009507513-1407USA001671

PATIENT
  Sex: Male

DRUGS (2)
  1. SEROQUEL [Concomitant]
     Active Substance: QUETIAPINE FUMARATE
     Indication: BIPOLAR DISORDER
     Dosage: UNK
     Route: 065
     Dates: start: 2008, end: 2011
  2. PROPECIA [Suspect]
     Active Substance: FINASTERIDE
     Indication: ALOPECIA
     Dosage: 1 MG, UNK
     Route: 048
     Dates: start: 20110609, end: 20110625

REACTIONS (43)
  - Prostatic disorder [Unknown]
  - Loss of libido [Unknown]
  - Suicide attempt [Unknown]
  - Disturbance in attention [Unknown]
  - Body dysmorphic disorder [Unknown]
  - Substance abuse [Fatal]
  - Anxiety [Not Recovered/Not Resolved]
  - Testicular pain [Unknown]
  - Panic disorder [Unknown]
  - Depression [Recovering/Resolving]
  - Substance dependence [Recovering/Resolving]
  - Weight increased [Not Recovered/Not Resolved]
  - Increased appetite [Unknown]
  - Suicidal ideation [Not Recovered/Not Resolved]
  - Erectile dysfunction [Not Recovered/Not Resolved]
  - Gynaecomastia [Not Recovered/Not Resolved]
  - Hypogonadism [Unknown]
  - Depression [Unknown]
  - Drug abuse [Unknown]
  - Anhedonia [Unknown]
  - Feeling guilty [Unknown]
  - Cognitive disorder [Unknown]
  - Peyronie^s disease [Unknown]
  - Libido decreased [Unknown]
  - Semen volume decreased [Unknown]
  - Bipolar disorder [Unknown]
  - Back pain [Unknown]
  - Sexual dysfunction [Not Recovered/Not Resolved]
  - Pollakiuria [Unknown]
  - Grief reaction [Unknown]
  - Suicidal ideation [Unknown]
  - Bulimia nervosa [Unknown]
  - Neck pain [Unknown]
  - Muscle operation [Unknown]
  - Insomnia [Unknown]
  - Arthropathy [Unknown]
  - Depression [Not Recovered/Not Resolved]
  - Penis disorder [Unknown]
  - Genital atrophy [Unknown]
  - Chest pain [Unknown]
  - Overdose [Unknown]
  - Asthenia [Unknown]
  - Musculoskeletal pain [Unknown]

NARRATIVE: CASE EVENT DATE: 2011
